FAERS Safety Report 15694183 (Version 1)
Quarter: 2018Q4

REPORT INFORMATION
  Report Type: Report from Study
  Country: MX (occurrence: MX)
  Receive Date: 20181206
  Receipt Date: 20181206
  Transmission Date: 20190205
  Serious: Yes (Other)
  Sender: FDA-Public Use
  Company Number: PHHY2018MX134840

PATIENT
  Sex: Female

DRUGS (1)
  1. TRILEPTAL [Suspect]
     Active Substance: OXCARBAZEPINE
     Indication: PARTIAL SEIZURES
     Dosage: 0.5 DF, Q12H (150MG IN THE MORNING AND 150 MG AT NIGHT)
     Route: 048
     Dates: start: 199305

REACTIONS (4)
  - Epilepsy [Unknown]
  - Feeling abnormal [Not Recovered/Not Resolved]
  - Type 1 diabetes mellitus [Unknown]
  - Tension [Unknown]

NARRATIVE: CASE EVENT DATE: 2003
